FAERS Safety Report 24623830 (Version 1)
Quarter: 2024Q4

REPORT INFORMATION
  Report Type: Spontaneous
  Country: US (occurrence: None)
  Receive Date: 20241115
  Receipt Date: 20241115
  Transmission Date: 20250115
  Serious: No
  Sender: Public
  Company Number: None

PATIENT
  Age: 49 Year
  Sex: Male
  Weight: 97 kg

DRUGS (1)
  1. ALIROCUMAB [Suspect]
     Active Substance: ALIROCUMAB
     Dosage: 75.00 MG OTHER SUBCUTANEOUS
     Route: 058
     Dates: start: 20240405, end: 20240501

REACTIONS (1)
  - Oedema [None]

NARRATIVE: CASE EVENT DATE: 20240501
